FAERS Safety Report 25080526 (Version 2)
Quarter: 2025Q2

REPORT INFORMATION
  Report Type: Spontaneous
  Country: US (occurrence: US)
  Receive Date: 20250315
  Receipt Date: 20250407
  Transmission Date: 20250716
  Serious: No
  Sender: GRANULES INDIA
  Company Number: US-GRANULES-US-2025GRASPO00108

PATIENT

DRUGS (2)
  1. IBUPROFEN [Suspect]
     Active Substance: IBUPROFEN
     Indication: Product used for unknown indication
     Route: 065
  2. IBUPROFEN [Suspect]
     Active Substance: IBUPROFEN

REACTIONS (3)
  - Vomiting [Unknown]
  - Product dispensing error [Unknown]
  - Wrong product administered [Unknown]
